FAERS Safety Report 11126591 (Version 1)
Quarter: 2015Q2

REPORT INFORMATION
  Report Type: Spontaneous
  Country: US (occurrence: US)
  Receive Date: 20150520
  Receipt Date: 20150520
  Transmission Date: 20150821
  Serious: Yes (Death, Hospitalization, Other)
  Sender: FDA-Public Use
  Company Number: US-GLAXOSMITHKLINE-US2015066604

PATIENT
  Age: 71 Year
  Sex: Male

DRUGS (1)
  1. VOTRIENT [Suspect]
     Active Substance: PAZOPANIB HYDROCHLORIDE
     Indication: RENAL CANCER
     Dosage: 400 MG, BID
     Route: 048
     Dates: start: 201501, end: 2015

REACTIONS (7)
  - Lethargy [Unknown]
  - Abasia [Unknown]
  - Fall [Unknown]
  - Asthenia [Unknown]
  - Hospitalisation [Unknown]
  - Ageusia [Unknown]
  - Death [Fatal]

NARRATIVE: CASE EVENT DATE: 2015
